FAERS Safety Report 23703287 (Version 1)
Quarter: 2024Q2

REPORT INFORMATION
  Report Type: Spontaneous
  Country: CN (occurrence: CN)
  Receive Date: 20240403
  Receipt Date: 20240403
  Transmission Date: 20240716
  Serious: Yes (Hospitalization)
  Sender: FDA-Public Use
  Company Number: CN-FreseniusKabi-FK202405513

PATIENT
  Age: 79 Year
  Sex: Male
  Weight: 45 kg

DRUGS (1)
  1. LACTULOSE [Suspect]
     Active Substance: LACTULOSE
     Indication: Constipation
     Dosage: FORM OF ADMIN: SOLUTION?ROUTE: ORAL
     Dates: start: 20240321, end: 20240321

REACTIONS (6)
  - Diarrhoea [Recovering/Resolving]
  - Hyperpyrexia [Recovering/Resolving]
  - Confusional state [Recovering/Resolving]
  - Respiration abnormal [Recovering/Resolving]
  - Skin discolouration [Recovering/Resolving]
  - Ocular icterus [Recovering/Resolving]

NARRATIVE: CASE EVENT DATE: 20240321
